FAERS Safety Report 9500575 (Version 1)
Quarter: 2013Q3

REPORT INFORMATION
  Report Type: Spontaneous
  Country: FR (occurrence: FR)
  Receive Date: 20130905
  Receipt Date: 20130905
  Transmission Date: 20140515
  Serious: Yes (Hospitalization)
  Sender: FDA-Public Use
  Company Number: FR-JNJFOC-20130900858

PATIENT
  Age: 83 Year
  Sex: Female

DRUGS (6)
  1. XARELTO [Suspect]
     Indication: PRODUCT USED FOR UNKNOWN INDICATION
     Route: 048
     Dates: start: 20130430, end: 20130723
  2. OMEPRAZOLE [Concomitant]
     Route: 065
  3. ELISOR [Concomitant]
     Route: 065
  4. CO RENITEC [Concomitant]
     Route: 065
  5. PROZAC [Concomitant]
     Route: 065
  6. MIANSERINE RATIOPHARM [Concomitant]
     Route: 065

REACTIONS (1)
  - Anaemia [Recovering/Resolving]
